FAERS Safety Report 13296807 (Version 3)
Quarter: 2017Q1

REPORT INFORMATION
  Report Type: Spontaneous
  Country: JP (occurrence: JP)
  Receive Date: 20170306
  Receipt Date: 20170316
  Transmission Date: 20170428
  Serious: Yes (Other)
  Sender: FDA-Public Use
  Company Number: JP-009507513-1702JPN002353J

PATIENT
  Age: 8 Decade
  Sex: Female

DRUGS (3)
  1. GRACEVIT [Concomitant]
     Active Substance: SITAFLOXACIN
     Dosage: UNK
     Route: 048
  2. DESALEX TABLETS 5MG [Suspect]
     Active Substance: DESLORATADINE
     Dosage: UNK
     Route: 048
  3. CRAVIT [Concomitant]
     Active Substance: LEVOFLOXACIN
     Dosage: UNK
     Route: 048

REACTIONS (2)
  - Immune thrombocytopenic purpura [Recovered/Resolved]
  - Mucosal haemorrhage [Unknown]

NARRATIVE: CASE EVENT DATE: 20170227
